FAERS Safety Report 11740666 (Version 2)
Quarter: 2015Q4

REPORT INFORMATION
  Report Type: Spontaneous
  Country: US (occurrence: US)
  Receive Date: 20151110
  Receipt Date: 20151120
  Transmission Date: 20160304
  Serious: No
  Sender: FDA-Public Use
  Company Number: US-ELI_LILLY_AND_COMPANY-US201202008288

PATIENT
  Age: 75 Year
  Sex: Female
  Weight: 46 kg

DRUGS (19)
  1. PLAVIX [Concomitant]
     Active Substance: CLOPIDOGREL BISULFATE
  2. VITAMIN C [Concomitant]
     Active Substance: ASCORBIC ACID
  3. CALCIUM CITRATE [Concomitant]
     Active Substance: CALCIUM CITRATE
  4. DIGOXIN. [Concomitant]
     Active Substance: DIGOXIN
  5. CELEBREX [Concomitant]
     Active Substance: CELECOXIB
  6. OXYBUTYNIN [Concomitant]
     Active Substance: OXYBUTYNIN
  7. ARIMIDEX [Concomitant]
     Active Substance: ANASTROZOLE
  8. ASA [Concomitant]
     Active Substance: ASPIRIN
  9. VITAMIN D [Concomitant]
     Active Substance: CHOLECALCIFEROL
  10. IMDUR [Concomitant]
     Active Substance: ISOSORBIDE MONONITRATE
  11. CELEXA [Concomitant]
     Active Substance: CITALOPRAM HYDROBROMIDE
  12. XANAX [Concomitant]
     Active Substance: ALPRAZOLAM
     Dosage: UNK, PRN
  13. PRIMATENE [Concomitant]
     Active Substance: EPHEDRINE HYDROCHLORIDE\GUAIFENESIN
  14. LISINOPRIL. [Concomitant]
     Active Substance: LISINOPRIL
  15. FORTEO [Suspect]
     Active Substance: TERIPARATIDE
     Dosage: 20 UG, QD
  16. LIPITOR [Concomitant]
     Active Substance: ATORVASTATIN CALCIUM
  17. FORTEO [Suspect]
     Active Substance: TERIPARATIDE
     Indication: OSTEOPOROSIS
     Dosage: 20 UG, QD
     Route: 065
     Dates: start: 20120209
  18. FORTEO [Suspect]
     Active Substance: TERIPARATIDE
     Dosage: 20 UG, QD
     Route: 065
  19. ZANTAC [Concomitant]
     Active Substance: RANITIDINE HYDROCHLORIDE

REACTIONS (8)
  - Ovarian cyst [Unknown]
  - Somnolence [Unknown]
  - Physiotherapy [Unknown]
  - Mobility decreased [Unknown]
  - Pulmonary mass [Unknown]
  - Fall [Unknown]
  - Contusion [Unknown]
  - Nephrolithiasis [Unknown]

NARRATIVE: CASE EVENT DATE: 20120408
